FAERS Safety Report 11718049 (Version 1)
Quarter: 2015Q4

REPORT INFORMATION
  Report Type: Spontaneous
  Country: FR (occurrence: FR)
  Receive Date: 20151110
  Receipt Date: 20151110
  Transmission Date: 20160304
  Serious: Yes (Hospitalization)
  Sender: FDA-Public Use
  Company Number: FR-SA-2015SA174135

PATIENT
  Age: 61 Year
  Sex: Female
  Weight: 59 kg

DRUGS (13)
  1. ARAVA [Suspect]
     Active Substance: LEFLUNOMIDE
     Route: 065
  2. ENBREL [Concomitant]
     Active Substance: ETANERCEPT
  3. MABTHERA [Concomitant]
     Active Substance: RITUXIMAB
  4. ROACTEMRA [Concomitant]
     Active Substance: TOCILIZUMAB
  5. CIMZIA [Concomitant]
     Active Substance: CERTOLIZUMAB PEGOL
  6. CORTANCYL [Concomitant]
     Active Substance: PREDNISONE
     Route: 048
  7. SPECIAFOLDINE [Concomitant]
     Active Substance: FOLIC ACID
     Route: 048
     Dates: start: 201403
  8. SIMPONI [Concomitant]
     Active Substance: GOLIMUMAB
     Dosage: FREQUENCY: PER MONTH
     Route: 058
     Dates: start: 201402, end: 20150823
  9. HUMIRA [Concomitant]
     Active Substance: ADALIMUMAB
  10. ORENCIA [Concomitant]
     Active Substance: ABATACEPT
  11. MOPRAL [Concomitant]
     Active Substance: OMEPRAZOLE SODIUM
     Route: 048
  12. METOJECT [Concomitant]
     Active Substance: METHOTREXATE SODIUM
     Route: 058
     Dates: start: 201403, end: 20150907
  13. REMICADE [Concomitant]
     Active Substance: INFLIXIMAB

REACTIONS (1)
  - Cell death [Unknown]
